FAERS Safety Report 13740797 (Version 2)
Quarter: 2018Q2

REPORT INFORMATION
  Report Type: Spontaneous
  Country: US (occurrence: US)
  Receive Date: 20170711
  Receipt Date: 20180405
  Transmission Date: 20180711
  Serious: No
  Sender: FDA-Public Use
  Company Number: US-009507513-1706USA002818

PATIENT
  Sex: Female
  Weight: 87.08 kg

DRUGS (1)
  1. NEXPLANON [Suspect]
     Active Substance: ETONOGESTREL
     Dosage: 1 DF, UNK
     Route: 059
     Dates: start: 20160407, end: 20170526

REACTIONS (2)
  - Device breakage [Recovered/Resolved]
  - No adverse event [Unknown]
